FAERS Safety Report 14147783 (Version 2)
Quarter: 2017Q4

REPORT INFORMATION
  Report Type: Spontaneous
  Country: US (occurrence: US)
  Receive Date: 20171101
  Receipt Date: 20171211
  Transmission Date: 20180321
  Serious: Yes (Hospitalization)
  Sender: FDA-Public Use
  Company Number: US-ASTRAZENECA-2017SF09281

PATIENT
  Sex: Female

DRUGS (2)
  1. SYMBICORT [Suspect]
     Active Substance: BUDESONIDE\FORMOTEROL FUMARATE DIHYDRATE
     Dosage: 160/4.5MCG 120-DOSE INHALER, TWO PUFFS TWICE DAILY
     Route: 055
  2. PROAIR HFA [Suspect]
     Active Substance: ALBUTEROL SULFATE
     Route: 065

REACTIONS (5)
  - Intentional product misuse [Recovered/Resolved]
  - Cardiac disorder [Unknown]
  - Palpitations [Unknown]
  - Limb injury [Unknown]
  - Device issue [Unknown]

NARRATIVE: CASE EVENT DATE: 2017
